FAERS Safety Report 6372132-2 (Version None)
Quarter: 2009Q3

REPORT INFORMATION
  Report Type: 
  Country: None (occurrence: None)
  Receive Date: 20090917
  Receipt Date: 20090904
  Transmission Date: 20100115
  Serious: Yes (Death)
  Sender: FDA-Public Use
  Company Number: ADR16232009

PATIENT
  Age: 88 Year
  Sex: Female

DRUGS (8)
  1. CITALOPRAM HYDROBROMIDE [Suspect]
     Indication: DEPRESSION
     Dosage: 40 MG PER DAY
     Route: 048
     Dates: start: 20050722
  2. ASPIRIN [Concomitant]
  3. FOLIC ACID [Concomitant]
  4. LATANOPROST [Concomitant]
  5. RAMIPRIL [Concomitant]
  6. TEMAZEPAM [Concomitant]
  7. TOLTERODINE TARTRATE [Concomitant]
  8. TRIMETHOPRIM [Concomitant]

REACTIONS (2)
  - ACCIDENTAL DEATH [None]
  - DRUG TOXICITY [None]
